FAERS Safety Report 18844289 (Version 1)
Quarter: 2021Q1

REPORT INFORMATION
  Report Type: Report from Study
  Country: US (occurrence: US)
  Receive Date: 20210203
  Receipt Date: 20210203
  Transmission Date: 20210419
  Serious: No
  Sender: FDA-Public Use
  Company Number: US-EXELIXIS-CABO-19026331

PATIENT
  Sex: Male

DRUGS (7)
  1. CABOMETYX [Suspect]
     Active Substance: CABOZANTINIB S-MALATE
     Indication: RENAL CANCER
     Dosage: 60 MG, QD
     Route: 048
     Dates: start: 20191130
  2. POLYETHYLENE GLYCOL [Concomitant]
     Active Substance: POLYETHYLENE GLYCOLS
  3. TELMISARTAN. [Concomitant]
     Active Substance: TELMISARTAN
  4. LANSOPRAZOLE. [Concomitant]
     Active Substance: LANSOPRAZOLE
  5. AMLODIPINE BENAZEPRIL [Concomitant]
     Active Substance: AMLODIPINE BESYLATE\BENAZEPRIL HYDROCHLORIDE
  6. MEMANTINE HCL [Concomitant]
     Active Substance: MEMANTINE
  7. DONEPEZIL. [Concomitant]
     Active Substance: DONEPEZIL

REACTIONS (5)
  - Diarrhoea [Unknown]
  - Arthralgia [Unknown]
  - Erythema [Unknown]
  - Back pain [Unknown]
  - Adverse drug reaction [Unknown]
